FAERS Safety Report 8034011-4 (Version None)
Quarter: 2011Q4

REPORT INFORMATION
  Report Type: 
  Country: None (occurrence: None)
  Receive Date: 20111222
  Receipt Date: 20111212
  Transmission Date: 20120403
  Serious: Yes (Hospitalization, Other)
  Sender: FDA-Public Use
  Company Number: 2011MA017521

PATIENT
  Sex: Female
  Weight: 49.8957 kg

DRUGS (35)
  1. VERAPAMIL [Concomitant]
  2. ADVAIR DISKUS 100/50 [Concomitant]
  3. TRANDOLAPRIL [Concomitant]
  4. MAGNESIUM GLUCONATE [Concomitant]
  5. PREMARIN [Concomitant]
  6. NITROGLYCERIN [Concomitant]
  7. PANCREASE [Concomitant]
  8. FERROUS SULFATE TAB [Concomitant]
  9. PROTONIX [Concomitant]
  10. MICARDIS [Concomitant]
  11. AMITRIPTYLINE HCL [Concomitant]
  12. AEROMED [Concomitant]
  13. TOPROL-XL [Concomitant]
  14. ADVAIR DISKUS 100/50 [Concomitant]
  15. TRIAVIL [Concomitant]
  16. HYDROCHLOROTHIAZIDE [Concomitant]
  17. CREON [Concomitant]
  18. CEFEPIME [Concomitant]
  19. TOPROL-XL [Concomitant]
  20. NEXIUM [Concomitant]
  21. ASPIRIN [Concomitant]
  22. CARDIZEM [Concomitant]
  23. LEVAQUIN [Concomitant]
  24. FIORICET [Concomitant]
  25. SPIRIVA [Concomitant]
  26. VICODIN [Concomitant]
  27. DIGOXIN [Suspect]
     Dosage: 0.25 MG;QD;PO
     Route: 048
     Dates: start: 20070813, end: 20080321
  28. TRICOR [Concomitant]
  29. XANAX [Concomitant]
  30. TOPROL-XL [Concomitant]
  31. SODIUM CHLORIDE [Concomitant]
  32. SODIUM BICARBONATE [Concomitant]
  33. ALBUTEROL [Concomitant]
  34. TOPAMAX [Concomitant]
  35. PHENERGAN [Concomitant]

REACTIONS (105)
  - CARDIAC ANEURYSM [None]
  - COELIAC DISEASE [None]
  - MALAISE [None]
  - DEHYDRATION [None]
  - HEPATITIS [None]
  - RETCHING [None]
  - BREAST DISORDER [None]
  - LUNG CONSOLIDATION [None]
  - PANCREATIC CYST [None]
  - WEIGHT DECREASED [None]
  - CORONARY ARTERY INSUFFICIENCY [None]
  - TRICUSPID VALVE INCOMPETENCE [None]
  - ABDOMINAL PAIN [None]
  - ASTHENIA [None]
  - APHAGIA [None]
  - HYPONATRAEMIA [None]
  - CONFUSIONAL STATE [None]
  - MEMORY IMPAIRMENT [None]
  - WEIGHT INCREASED [None]
  - PULMONARY EMBOLISM [None]
  - HEPATIC MASS [None]
  - MUSCLE HYPERTROPHY [None]
  - ALOPECIA [None]
  - AZOTAEMIA [None]
  - ABDOMINAL DISTENSION [None]
  - NAUSEA [None]
  - RIGHT VENTRICULAR HYPERTROPHY [None]
  - PAIN [None]
  - ANXIETY [None]
  - BACK PAIN [None]
  - DECREASED APPETITE [None]
  - SUPRAVENTRICULAR TACHYCARDIA [None]
  - AORTIC DISSECTION [None]
  - ADRENAL ADENOMA [None]
  - PANCREATITIS CHRONIC [None]
  - PANCREATIC CALCIFICATION [None]
  - CHEST PAIN [None]
  - GLAUCOMA [None]
  - DIARRHOEA [None]
  - ABDOMINAL DISCOMFORT [None]
  - COUGH [None]
  - LEFT VENTRICULAR HYPERTROPHY [None]
  - AORTIC ANEURYSM [None]
  - GASTRIC ULCER [None]
  - CAROTID ARTERY STENOSIS [None]
  - DILATATION INTRAHEPATIC DUCT ACQUIRED [None]
  - HAIR DISORDER [None]
  - ATRIAL SEPTAL DEFECT [None]
  - HYPOXIA [None]
  - MIGRAINE [None]
  - ARTHRITIS [None]
  - BREAST PAIN [None]
  - RESPIRATORY FAILURE [None]
  - HYPERTENSIVE CRISIS [None]
  - CHRONIC OBSTRUCTIVE PULMONARY DISEASE [None]
  - HYPOKALAEMIA [None]
  - PULMONARY FIBROSIS [None]
  - FACET JOINT SYNDROME [None]
  - MYOCARDIAL ISCHAEMIA [None]
  - COR PULMONALE [None]
  - CHEST DISCOMFORT [None]
  - PULMONARY HYPERTENSION [None]
  - TOXICITY TO VARIOUS AGENTS [None]
  - DYSPNOEA [None]
  - DYSPNOEA EXERTIONAL [None]
  - TRANSIENT ISCHAEMIC ATTACK [None]
  - EMPHYSEMA [None]
  - DIASTOLIC DYSFUNCTION [None]
  - URINARY RETENTION [None]
  - ATELECTASIS [None]
  - ANAEMIA [None]
  - PLEURAL EFFUSION [None]
  - INTERVERTEBRAL DISC PROTRUSION [None]
  - VERTEBRAL FORAMINAL STENOSIS [None]
  - HYPOTENSION [None]
  - BLOOD TRIGLYCERIDES INCREASED [None]
  - VOMITING [None]
  - HYPERPHOSPHATAEMIA [None]
  - URINARY TRACT INFECTION BACTERIAL [None]
  - ABDOMINAL PAIN UPPER [None]
  - DEPRESSION [None]
  - SINUS TACHYCARDIA [None]
  - PULMONARY ARTERIAL HYPERTENSION [None]
  - INTESTINAL DILATATION [None]
  - INFLAMMATION [None]
  - LUNG INFILTRATION [None]
  - MELAENA [None]
  - RENAL FAILURE ACUTE [None]
  - LUNG DISORDER [None]
  - IRRITABLE BOWEL SYNDROME [None]
  - DIZZINESS [None]
  - GASTRITIS [None]
  - GASTROOESOPHAGEAL REFLUX DISEASE [None]
  - PEPTIC ULCER [None]
  - ATRIOVENTRICULAR BLOCK [None]
  - LYMPHADENOPATHY MEDIASTINAL [None]
  - HILAR LYMPHADENOPATHY [None]
  - LYMPHADENOPATHY [None]
  - SPINAL OSTEOARTHRITIS [None]
  - BODY TEMPERATURE DECREASED [None]
  - SINUSITIS [None]
  - BREAST MASS [None]
  - SPINAL COLUMN STENOSIS [None]
  - HEPATIC NEOPLASM [None]
  - HEPATIC STEATOSIS [None]
